FAERS Safety Report 7938728 (Version 6)
Quarter: 2012Q4

REPORT INFORMATION
  Report Type: 
  Country: US (occurrence: US)
  Receive Date: 20110510
  Receipt Date: 20121130
  Transmission Date: 20130627
  Serious: Yes (Life-Threatening, Hospitalization)
  Sender: FDA-Public Use
  Company Number: US-ACTELION-A-NJ2011-48103

PATIENT
  Age: 80 Year
  Sex: Female

DRUGS (4)
  1. TRACLEER [Suspect]
     Indication: PULMONARY ARTERIAL HYPERTENSION
     Dosage: UNK
     Route: 048
  2. COUMADIN [Concomitant]
  3. CARDIZEM [Concomitant]
  4. GLUCOPHAGE [Concomitant]

REACTIONS (4)
  - Hepatic enzyme increased [Recovering/Resolving]
  - Blood alkaline phosphatase increased [Recovering/Resolving]
  - International normalised ratio increased [Unknown]
  - Cholecystitis [Unknown]
